FAERS Safety Report 20054033 (Version 1)
Quarter: 2021Q4

REPORT INFORMATION
  Report Type: Spontaneous
  Country: US (occurrence: US)
  Receive Date: 20211110
  Receipt Date: 20211110
  Transmission Date: 20220303
  Serious: Yes (Death, Hospitalization)
  Sender: FDA-Public Use
  Company Number: US-NOVARTISPH-NVSC2021US255695

PATIENT
  Age: 46 Year
  Sex: Female

DRUGS (4)
  1. RANITIDINE [Suspect]
     Active Substance: RANITIDINE
     Indication: Dyspepsia
     Dosage: 150 MG, QD
     Route: 048
     Dates: start: 200003, end: 201906
  2. RANITIDINE [Suspect]
     Active Substance: RANITIDINE
     Indication: Gastrinoma
  3. RANITIDINE [Suspect]
     Active Substance: RANITIDINE
     Indication: Dyspepsia
     Dosage: 150 MG, QD
     Route: 048
     Dates: start: 200003, end: 201906
  4. RANITIDINE [Suspect]
     Active Substance: RANITIDINE
     Indication: Gastrinoma

REACTIONS (2)
  - Oesophageal carcinoma [Fatal]
  - Incorrect dose administered [Unknown]

NARRATIVE: CASE EVENT DATE: 20110101
